FAERS Safety Report 8350015-6 (Version None)
Quarter: 2012Q2

REPORT INFORMATION
  Report Type: 
  Country: None (occurrence: None)
  Receive Date: 20120510
  Receipt Date: 20120508
  Transmission Date: 20120825
  Serious: Yes (Other)
  Sender: FDA-Public Use
  Company Number: CN-ROCHE-1043411

PATIENT
  Age: 58 Year
  Sex: Female
  Weight: 50 kg

DRUGS (2)
  1. XELODA [Suspect]
     Indication: RECTAL CANCER
     Route: 048
     Dates: start: 20120104, end: 20120315
  2. XELODA [Suspect]
     Route: 048
     Dates: start: 20120420

REACTIONS (4)
  - RECTAL CANCER [None]
  - NAUSEA [None]
  - DIARRHOEA [None]
  - PYREXIA [None]
